FAERS Safety Report 8997361 (Version 2)
Quarter: 2013Q1

REPORT INFORMATION
  Report Type: Spontaneous
  Country: CA (occurrence: CA)
  Receive Date: 20130104
  Receipt Date: 20130130
  Transmission Date: 20140127
  Serious: Yes (Hospitalization)
  Sender: FDA-Public Use
  Company Number: CA-ASTELLAS-2012US012920

PATIENT
  Age: 26 Year
  Sex: Female
  Weight: 108 kg

DRUGS (9)
  1. ADENOSCAN [Suspect]
     Indication: SCAN MYOCARDIAL PERFUSION
     Dosage: UNK
     Route: 065
     Dates: start: 20110525, end: 20110525
  2. BEVACIZUMAB [Suspect]
     Indication: BREAST CANCER
     Dosage: 15 MG/KG, Q3W
     Route: 042
     Dates: start: 20100527, end: 20110204
  3. TRASTUZUMAB [Suspect]
     Indication: BREAST CANCER
     Dosage: 6 MG/KG, Q3W
     Route: 042
     Dates: start: 20100527
  4. TRASTUZUMAB [Suspect]
     Dosage: 6 MG/KG, Q3W
     Route: 042
     Dates: start: 20100927, end: 20110429
  5. CARBOPLATIN [Suspect]
     Indication: BREAST CANCER
     Dosage: 1070 MG, Q3W
     Route: 042
     Dates: start: 20100527, end: 20100909
  6. DOCETAXEL [Suspect]
     Indication: BREAST CANCER
     Dosage: 60 MG/M2, Q3W
     Route: 042
     Dates: start: 20100527, end: 20100909
  7. FENTANYL [Concomitant]
     Indication: PRODUCT USED FOR UNKNOWN INDICATION
     Dosage: 37 UG, UID/QD
     Route: 062
  8. HYDROMORPHONE [Concomitant]
     Indication: PRODUCT USED FOR UNKNOWN INDICATION
     Dosage: 2 MG, UID/QD
     Route: 065
  9. CARBAMAZEPINE [Concomitant]
     Indication: PRODUCT USED FOR UNKNOWN INDICATION
     Dosage: 100 MG, UID/QD
     Route: 065

REACTIONS (2)
  - Intracranial pressure increased [Recovered/Resolved]
  - Retinal haemorrhage [Recovered/Resolved]
